FAERS Safety Report 25101672 (Version 2)
Quarter: 2025Q2

REPORT INFORMATION
  Report Type: Report from Study
  Country: GB (occurrence: GB)
  Receive Date: 20250320
  Receipt Date: 20250612
  Transmission Date: 20250716
  Serious: Yes (Hospitalization, Other)
  Sender: NOVARTIS
  Company Number: GB-002147023-NVSC2025GB043642

PATIENT
  Sex: Male

DRUGS (1)
  1. MAYZENT [Suspect]
     Active Substance: SIPONIMOD
     Indication: Secondary progressive multiple sclerosis
     Dosage: 2 MG, QD
     Route: 048
     Dates: start: 20240828

REACTIONS (8)
  - Hyperhidrosis [Recovered/Resolved]
  - Fatigue [Unknown]
  - Feeling cold [Recovered/Resolved]
  - Cataract [Not Recovered/Not Resolved]
  - Basal cell carcinoma [Unknown]
  - Skin lesion [Unknown]
  - Glaucoma [Not Recovered/Not Resolved]
  - Skin infection [Recovered/Resolved]

NARRATIVE: CASE EVENT DATE: 20241201
